FAERS Safety Report 17596957 (Version 1)
Quarter: 2020Q1

REPORT INFORMATION
  Report Type: Spontaneous
  Country: US (occurrence: US)
  Receive Date: 20200330
  Receipt Date: 20200330
  Transmission Date: 20200409
  Serious: No
  Sender: FDA-Public Use
  Company Number: NVSC2020US083382

PATIENT
  Sex: Female

DRUGS (2)
  1. TAZAROTENE. [Suspect]
     Active Substance: TAZAROTENE
     Indication: HYPERKERATOSIS LENTICULARIS PERSTANS
     Dosage: 0.1%
     Route: 061
  2. 5 FLUORO URACIL [Concomitant]
     Active Substance: FLUOROURACIL
     Indication: HYPERKERATOSIS LENTICULARIS PERSTANS
     Dosage: UNK
     Route: 061

REACTIONS (1)
  - Post inflammatory pigmentation change [Unknown]
